FAERS Safety Report 25049135 (Version 4)
Quarter: 2025Q3

REPORT INFORMATION
  Report Type: Spontaneous
  Country: JP (occurrence: JP)
  Receive Date: 20250307
  Receipt Date: 20250809
  Transmission Date: 20251020
  Serious: Yes (Death, Hospitalization, Other)
  Sender: ALEXION PHARMACEUTICALS
  Company Number: JP-ASTRAZENECA-250021065_012620_P_1

PATIENT
  Age: 54 Year
  Sex: Female
  Weight: 78 kg

DRUGS (7)
  1. TRUQAP [Suspect]
     Active Substance: CAPIVASERTIB
     Indication: Breast cancer
  2. TRUQAP [Suspect]
     Active Substance: CAPIVASERTIB
     Dosage: FOUR CONSECUTIVE DAYS ON TREATMENT FOLLOWED BY THREE DAYS OFF TREATMENT
     Dates: start: 20250121, end: 20250128
  3. TRUQAP [Suspect]
     Active Substance: CAPIVASERTIB
     Dosage: FOUR CONSECUTIVE DAYS ON TREATMENT FOLLOWED BY THREE DAYS OFF TREATMENT
     Dates: start: 20250217
  4. FASLODEX [Suspect]
     Active Substance: FULVESTRANT
  5. FASLODEX [Suspect]
     Active Substance: FULVESTRANT
  6. LINAGLIPTIN [Concomitant]
     Active Substance: LINAGLIPTIN
     Indication: Diabetes mellitus
  7. LINAGLIPTIN [Concomitant]
     Active Substance: LINAGLIPTIN

REACTIONS (3)
  - Malignant neoplasm progression [Fatal]
  - Diabetic ketoacidosis [Fatal]
  - Generalised oedema [Unknown]

NARRATIVE: CASE EVENT DATE: 20250121
